FAERS Safety Report 9964050 (Version 1)
Quarter: 2014Q1

REPORT INFORMATION
  Report Type: Report from Study
  Country: BE (occurrence: BE)
  Receive Date: 20140305
  Receipt Date: 20140305
  Transmission Date: 20141002
  Serious: Yes (Hospitalization)
  Sender: FDA-Public Use
  Company Number: BE-VIIV HEALTHCARE LIMITED-B0970707A

PATIENT
  Age: 44 Year
  Sex: Male
  Weight: 71.6 kg

DRUGS (10)
  1. MARAVIROC [Suspect]
     Indication: HIV INFECTION
     Dosage: 600MG TWICE PER DAY
     Route: 048
     Dates: start: 20110531
  2. LAMIVUDINE-HIV [Concomitant]
     Indication: HIV INFECTION
     Route: 048
     Dates: start: 20110531
  3. ETRAVIRINE [Concomitant]
     Indication: HIV INFECTION
     Dosage: 200MG TWICE PER DAY
     Route: 048
     Dates: start: 20110531
  4. RALTEGRAVIR [Concomitant]
     Indication: HIV INFECTION
     Dosage: 400MG TWICE PER DAY
     Route: 048
     Dates: start: 20110531
  5. CLARITHROMYCINE [Concomitant]
     Dosage: 500MG TWICE PER DAY
  6. PANTOPRAZOLE [Concomitant]
     Dosage: 20MG PER DAY
  7. TRAMADOL [Concomitant]
     Dosage: 100MG TWICE PER DAY
  8. TRAMADOL [Concomitant]
     Dosage: 50MG AS REQUIRED
  9. DAFALGAN [Concomitant]
     Dosage: 1G AS REQUIRED
  10. MOVICOL [Concomitant]

REACTIONS (2)
  - Intestinal obstruction [Recovered/Resolved]
  - Metastases to peritoneum [Recovered/Resolved]
